FAERS Safety Report 10043292 (Version 1)
Quarter: 2014Q1

REPORT INFORMATION
  Report Type: Report from Study
  Country: IL (occurrence: IL)
  Receive Date: 20140328
  Receipt Date: 20140328
  Transmission Date: 20141002
  Serious: Yes (Other)
  Sender: FDA-Public Use
  Company Number: IL-ROCHE-1373643

PATIENT
  Age: 76 Year
  Sex: Male

DRUGS (1)
  1. BEVACIZUMAB [Suspect]
     Indication: RETINAL ARTERY OCCLUSION
     Dosage: APPROXIMATELY 1.25 MG/0.05 ML BEVACIZUMAB PER DROP, EQUIVALENT TO A CONCENTRATION OF 25 MG/ML) 4 TIM
     Route: 061

REACTIONS (2)
  - Punctate keratitis [Recovered/Resolved]
  - Off label use [Unknown]
